FAERS Safety Report 12294165 (Version 1)
Quarter: 2016Q2

REPORT INFORMATION
  Report Type: Spontaneous
  Country: IE (occurrence: IE)
  Receive Date: 20160422
  Receipt Date: 20160422
  Transmission Date: 20160815
  Serious: Yes (Other)
  Sender: FDA-Public Use
  Company Number: IE-AMGEN-IRLSP2016049725

PATIENT
  Age: 70 Year
  Sex: Female

DRUGS (6)
  1. ENBREL [Suspect]
     Active Substance: ETANERCEPT
     Indication: PRODUCT USED FOR UNKNOWN INDICATION
     Dosage: UNK
     Route: 065
  2. STELARA [Suspect]
     Active Substance: USTEKINUMAB
     Indication: PRODUCT USED FOR UNKNOWN INDICATION
     Dosage: UNK
     Route: 065
  3. COVERSYL                           /00790702/ [Concomitant]
     Active Substance: PERINDOPRIL
     Dosage: 1.25 MG, 1X/DAY
  4. ELTROXIN [Concomitant]
     Active Substance: LEVOTHYROXINE
     Dosage: 100 MG, 1X/DAY
  5. ROSUVA [Concomitant]
     Active Substance: ROSUVASTATIN CALCIUM
     Dosage: 10 MG, 1X/DAY
  6. LYRICA [Concomitant]
     Active Substance: PREGABALIN
     Dosage: 75 MG, AS NEEDED

REACTIONS (2)
  - Anxiety [Unknown]
  - Carpal tunnel syndrome [Unknown]
